FAERS Safety Report 21942219 (Version 1)
Quarter: 2023Q1

REPORT INFORMATION
  Report Type: Report from Study
  Country: US (occurrence: US)
  Receive Date: 20230202
  Receipt Date: 20230202
  Transmission Date: 20230418
  Serious: No
  Sender: FDA-Public Use
  Company Number: US-EXELIXIS-CABO-22057226

PATIENT
  Sex: Male
  Weight: 70.989 kg

DRUGS (1)
  1. CABOMETYX [Suspect]
     Active Substance: CABOZANTINIB S-MALATE
     Indication: Renal cancer
     Dosage: UNK
     Route: 048

REACTIONS (7)
  - Peripheral swelling [Unknown]
  - Erythema [Unknown]
  - Skin ulcer [Unknown]
  - Blood pressure abnormal [Unknown]
  - Platelet count decreased [Unknown]
  - Thyroid hormones decreased [Not Recovered/Not Resolved]
  - Stomatitis [Unknown]
